FAERS Safety Report 6216675-0 (Version None)
Quarter: 2009Q2

REPORT INFORMATION
  Report Type: 
  Country: None (occurrence: None)
  Receive Date: 20090605
  Receipt Date: 20090528
  Transmission Date: 20091009
  Serious: Yes (Hospitalization)
  Sender: FDA-Public Use
  Company Number: US-CELGENEUS-163-21880-07041260

PATIENT
  Sex: Male
  Weight: 67 kg

DRUGS (2)
  1. REVLIMID [Suspect]
     Indication: EPENDYMOMA MALIGNANT
     Dosage: 52 MG/M2
     Route: 048
     Dates: start: 20070207, end: 20070421
  2. REVLIMID [Suspect]
     Dosage: 68 MG/M2
     Route: 048
     Dates: start: 20060517, end: 20061030

REACTIONS (5)
  - CELLULITIS [None]
  - HAEMATOMA [None]
  - NEUTROPENIA [None]
  - THROMBOCYTOPENIA [None]
  - WOUND INFECTION STAPHYLOCOCCAL [None]
